FAERS Safety Report 6825221-X (Version None)
Quarter: 2010Q3

REPORT INFORMATION
  Report Type: 
  Country: None (occurrence: None)
  Receive Date: 20100708
  Receipt Date: 20061226
  Transmission Date: 20110219
  Serious: No
  Sender: FDA-Public Use
  Company Number: US-PFIZER INC-2007001369

PATIENT
  Sex: Female
  Weight: 90.72 kg

DRUGS (15)
  1. CHANTIX [Suspect]
     Indication: SMOKING CESSATION THERAPY
     Dates: start: 20061101
  2. ACETYLSALICYLIC ACID [Concomitant]
  3. CALCIUM CARBONATE [Concomitant]
  4. FISH OIL [Concomitant]
  5. ZETIA [Concomitant]
  6. METOPROLOL [Concomitant]
  7. TRIAMTERENE [Concomitant]
  8. LIPITOR [Concomitant]
  9. PREVACID [Concomitant]
  10. ALPRAZOLAM [Concomitant]
  11. EFFEXOR [Concomitant]
  12. CALCITRIOL [Concomitant]
  13. SYNTHROID [Concomitant]
  14. SPIRIVA [Concomitant]
  15. ALBUTEROL [Concomitant]

REACTIONS (9)
  - CHILLS [None]
  - DIARRHOEA [None]
  - DIZZINESS [None]
  - INFLUENZA [None]
  - NAUSEA [None]
  - PYREXIA [None]
  - SOMNOLENCE [None]
  - VISION BLURRED [None]
  - VOMITING [None]
